FAERS Safety Report 7572933-9 (Version None)
Quarter: 2011Q2

REPORT INFORMATION
  Report Type: 
  Country: None (occurrence: None)
  Receive Date: 20110627
  Receipt Date: 20110613
  Transmission Date: 20111010
  Serious: Yes (Hospitalization, Other)
  Sender: FDA-Public Use
  Company Number: US-JNJFOC-20080204218

PATIENT
  Sex: Female
  Weight: 52.16 kg

DRUGS (4)
  1. DURAGESIC-100 [Suspect]
     Indication: BACK PAIN
     Route: 062
     Dates: start: 20050101, end: 20080126
  2. XANAX [Concomitant]
     Indication: MUSCLE RELAXANT THERAPY
     Dosage: HALF OF A 2MG TABLET DAILY
     Route: 048
     Dates: start: 20050401
  3. TRAMADOL HCL [Concomitant]
     Indication: PAIN
     Route: 048
     Dates: start: 20050401
  4. PREMARIN [Concomitant]
     Indication: HORMONE REPLACEMENT THERAPY
     Route: 048
     Dates: start: 20080109

REACTIONS (9)
  - OVERDOSE [None]
  - ROAD TRAFFIC ACCIDENT [None]
  - HYPERSOMNIA [None]
  - TOXICITY TO VARIOUS AGENTS [None]
  - DYSARTHRIA [None]
  - DEVICE FAILURE [None]
  - INADEQUATE ANALGESIA [None]
  - THERAPY CESSATION [None]
  - INAPPROPRIATE SCHEDULE OF DRUG ADMINISTRATION [None]
